FAERS Safety Report 8869226 (Version 1)
Quarter: 2012Q4

REPORT INFORMATION
  Report Type: Spontaneous
  Country: DE (occurrence: None)
  Receive Date: 20121022
  Receipt Date: 20121022
  Transmission Date: 20130627
  Serious: Yes (Life-Threatening, Hospitalization)
  Sender: FDA-Public Use
  Company Number: 2012MZ000391

PATIENT
  Sex: Female

DRUGS (2)
  1. XEOMIN [Suspect]
     Indication: DRUG USE FOR UNKNOWN INDICATION
     Dosage: ; X 1 ; 1 DAY
  2. BELOTERO (HYLURONIC ACID) [Suspect]
     Indication: DRUG USE FOR UNKNOWN INDICATION
     Dosage: ; X1 ; 1 DAY

REACTIONS (1)
  - Haemorrhage intracranial [None]
